FAERS Safety Report 8100364-1 (Version None)
Quarter: 2012Q1

REPORT INFORMATION
  Report Type: 
  Country: None (occurrence: None)
  Receive Date: 20120129
  Receipt Date: 20111214
  Transmission Date: 20120608
  Serious: No
  Sender: FDA-Public Use
  Company Number: US-ABBOTT-11P-163-0877992-00

PATIENT
  Age: 58 Year
  Sex: Female

DRUGS (9)
  1. GENERIC PROTONIX [Concomitant]
     Indication: DYSPEPSIA
  2. GENERIC LIBRAX [Concomitant]
     Indication: MUSCLE SPASMS
  3. HUMIRA [Suspect]
     Indication: CROHN'S DISEASE
     Dates: start: 20101201
  4. AMBIEN [Concomitant]
     Indication: INSOMNIA
  5. OMEGA FISH OIL [Concomitant]
     Indication: MINERAL SUPPLEMENTATION
  6. MULTI-VITAMIN [Concomitant]
     Indication: VITAMIN SUPPLEMENTATION
  7. VITAMIN D [Concomitant]
     Indication: VITAMIN SUPPLEMENTATION
  8. EXTRA STRENGTH TYLENOL [Concomitant]
     Indication: INSOMNIA
  9. GENERIC IMURAN [Concomitant]
     Indication: CROHN'S DISEASE

REACTIONS (3)
  - INCORRECT DOSE ADMINISTERED [None]
  - DEVICE MALFUNCTION [None]
  - INJECTION SITE PAIN [None]
